FAERS Safety Report 6380923-7 (Version None)
Quarter: 2009Q3

REPORT INFORMATION
  Report Type: 
  Country: None (occurrence: None)
  Receive Date: 20090929
  Receipt Date: 20090925
  Transmission Date: 20100115
  Serious: Yes (Death, Hospitalization)
  Sender: FDA-Public Use
  Company Number: JP-BAYER-200912512BYL

PATIENT
  Age: 70 Year
  Sex: Male
  Weight: 48 kg

DRUGS (12)
  1. NEXAVAR [Suspect]
     Indication: HEPATIC NEOPLASM MALIGNANT
     Dosage: UNIT DOSE: 200 MG
     Route: 048
     Dates: start: 20090701, end: 20090715
  2. OMEPRAL [Concomitant]
     Indication: GASTRIC ULCER
     Route: 048
     Dates: start: 20090507, end: 20090718
  3. HALCION [Concomitant]
     Route: 048
     Dates: end: 20090718
  4. MAGMITT [Concomitant]
     Route: 048
     Dates: start: 20070201, end: 20090718
  5. LASIX [Concomitant]
     Route: 048
     Dates: start: 20070201, end: 20090718
  6. URSO 250 [Concomitant]
     Route: 048
     Dates: start: 20070201, end: 20090718
  7. GLAKAY [Concomitant]
     Route: 048
     Dates: start: 20070201, end: 20090718
  8. ALLOPURINOL [Concomitant]
     Route: 048
     Dates: start: 20070201, end: 20090718
  9. LIVACT [Concomitant]
     Route: 048
     Dates: start: 20070801, end: 20090718
  10. NAUZELIN [Concomitant]
     Route: 048
     Dates: start: 20070801, end: 20090718
  11. PROMAC [Concomitant]
     Route: 048
     Dates: start: 20070801, end: 20090718
  12. UREPEARL [Concomitant]
     Indication: PROPHYLAXIS
     Route: 061
     Dates: start: 20090630, end: 20090718

REACTIONS (2)
  - ERYTHEMA MULTIFORME [None]
  - TRUNCUS COELIACUS THROMBOSIS [None]
